FAERS Safety Report 8391182-8 (Version None)
Quarter: 2012Q2

REPORT INFORMATION
  Report Type: 
  Country: None (occurrence: None)
  Receive Date: 20120529
  Receipt Date: 20120515
  Transmission Date: 20120825
  Serious: Yes (Other)
  Sender: FDA-Public Use
  Company Number: CA-ELI_LILLY_AND_COMPANY-CA201205005776

PATIENT
  Sex: Female

DRUGS (5)
  1. FLUOROURACIL [Concomitant]
     Indication: CHEMOTHERAPY
     Dosage: UNK
     Dates: start: 20120515
  2. CYCLOPHOSPHAMIDE [Concomitant]
     Indication: CHEMOTHERAPY
     Dosage: UNK
     Dates: start: 20120515
  3. DOCETAXEL [Concomitant]
     Indication: CHEMOTHERAPY
     Dosage: UNK
     Dates: start: 20120515
  4. PROZAC [Suspect]
     Indication: MAJOR DEPRESSION
     Dosage: 20 MG, UNK
     Dates: end: 20120515
  5. EPIRUBICIN [Concomitant]
     Indication: CHEMOTHERAPY
     Dosage: UNK
     Dates: start: 20120515

REACTIONS (1)
  - CHEMOTHERAPY [None]
